FAERS Safety Report 4759597-4 (Version None)
Quarter: 2005Q3

REPORT INFORMATION
  Report Type: 
  Country: None (occurrence: None)
  Receive Date: 20050901
  Receipt Date: 20050315
  Transmission Date: 20060218
  Serious: Yes (Hospitalization, Disabling, Other)
  Sender: FDA-Public Use
  Company Number: US-MERCK-0503USA03190

PATIENT
  Age: 48 Year
  Sex: Female
  Weight: 63 kg

DRUGS (26)
  1. VIOXX [Suspect]
     Indication: FIBROMYALGIA
     Route: 048
     Dates: start: 20010101, end: 20020101
  2. MOTRIN [Concomitant]
     Indication: PAIN
     Route: 065
     Dates: start: 20010101, end: 20050201
  3. MOTRIN [Concomitant]
     Indication: HEADACHE
     Route: 065
     Dates: start: 20010101, end: 20050201
  4. ACTIVELLA [Concomitant]
     Route: 065
  5. ALBUTEROL SULFATE [Concomitant]
     Route: 065
  6. ALLEGRA [Concomitant]
     Route: 065
  7. BENZONATATE [Concomitant]
     Route: 065
  8. CYCLOBENZAPRINE HYDROCHLORIDE [Concomitant]
     Route: 065
  9. DEMEROL [Concomitant]
     Route: 065
  10. DEPAKOTE [Concomitant]
     Route: 065
  11. DIFLUCAN [Concomitant]
     Route: 065
  12. DISALCID [Concomitant]
     Route: 065
  13. DULCOLAX [Concomitant]
     Route: 065
  14. ERYTHROMYCIN [Concomitant]
     Route: 065
  15. FENTANYL [Concomitant]
     Route: 065
  16. HEPARIN [Concomitant]
     Route: 065
  17. IMIPRAMINE OXIDE HYDROCHLORIDE [Concomitant]
     Route: 065
  18. OS-CAL [Concomitant]
     Route: 065
  19. OXYBUTYNIN [Concomitant]
     Route: 065
  20. PREMPHASE 14/14 [Concomitant]
     Route: 065
  21. PREMPRO [Concomitant]
     Route: 065
  22. PROMETHAZINE [Concomitant]
     Route: 065
  23. PROTONIX [Concomitant]
     Route: 065
  24. RANITIDINE [Concomitant]
     Route: 065
  25. SYNTHROID [Concomitant]
     Route: 065
  26. VERSED [Concomitant]
     Route: 065

REACTIONS (3)
  - ABDOMINAL PAIN UPPER [None]
  - CEREBROVASCULAR ACCIDENT [None]
  - CONVULSION [None]
